FAERS Safety Report 4946934-0 (Version None)
Quarter: 2006Q1

REPORT INFORMATION
  Report Type: 
  Country: None (occurrence: None)
  Receive Date: 20060313
  Receipt Date: 20060301
  Transmission Date: 20060701
  Serious: Yes (Hospitalization, Other)
  Sender: FDA-Public Use
  Company Number: 001-0073-990326

PATIENT
  Sex: Male
  Weight: 74.8435 kg

DRUGS (19)
  1. DILANTIN KAPSEAL [Suspect]
     Indication: CONVULSION
     Dosage: 500 MG (2 IN 1 D), ORAL
     Route: 048
     Dates: start: 19890101
  2. PHENYTOIN SODIUM [Suspect]
     Indication: CONVULSION
  3. BEE VENOM STANDARD (BEE VENOM, STANDARD) [Concomitant]
  4. ALL OTHER THERAPEUTIC PRODUCTS (ALL OTHER THERAPEUTIC PRODUCTS) [Concomitant]
  5. ZYRTEC [Suspect]
     Indication: MULTIPLE ALLERGIES
     Dosage: 10 MG, ORAL
     Route: 048
     Dates: start: 20000601
  6. ZYRTEC [Suspect]
     Indication: RASH
     Dosage: 10 MG, ORAL
     Route: 048
     Dates: start: 20000601
  7. ALOCHOL (ETHANOL) [Suspect]
     Indication: ILL-DEFINED DISORDER
     Dosage: ORAL
     Route: 048
  8. CALCIUM WITH VITAMIN D (CALCIUM PHOSPHATE, CALCIUM SODIUM LACTATE, ERG [Suspect]
     Indication: ILL-DEFINED DISORDER
  9. DEPAKOTE [Suspect]
     Indication: CONVULSION
     Dosage: 1000 MG (500 MG, 2 IN 1 D),
     Dates: start: 20060201
  10. ASPIRIN [Concomitant]
  11. MULTIVITAMINS (ERGOCALCIFEROL, ASCORBIC ACID, FOLIC ACID, THIAMIE HYDR [Concomitant]
  12. VITAMIN E [Concomitant]
  13. VITAMIN B (VITAMIN B) [Concomitant]
  14. ACETAMINOPHEN [Concomitant]
  15. ALKA-SELTZER PLUS (ACETYLSALICYLIC ACID CHLORPHENAMINE MALEATE, PHENYL [Concomitant]
  16. ALBUTEROL [Concomitant]
  17. BENADRYL [Concomitant]
  18. LORATADINE [Concomitant]
  19. CENTRUM SILVER (ASCORBIC ACID, CALCIUM, MINERALS NOS, RETINOL, TOCOPHE [Concomitant]

REACTIONS (32)
  - ABDOMINAL STRANGULATED HERNIA [None]
  - ALCOHOL USE [None]
  - ANGIONEUROTIC OEDEMA [None]
  - AURA [None]
  - BALANCE DISORDER [None]
  - BLOOD DISORDER [None]
  - CONVULSION [None]
  - DIZZINESS [None]
  - DRUG INTERACTION INHIBITION [None]
  - DRUG LEVEL DECREASED [None]
  - DRUG LEVEL INCREASED [None]
  - FEELING ABNORMAL [None]
  - FOOD ALLERGY [None]
  - HYPERSENSITIVITY [None]
  - HYPOGLYCAEMIA [None]
  - INAPPROPRIATE SCHEDULE OF DRUG ADMINISTRATION [None]
  - INCOHERENT [None]
  - INCORRECT DOSE ADMINISTERED [None]
  - INFLUENZA LIKE ILLNESS [None]
  - LIVER FUNCTION TEST ABNORMAL [None]
  - LOSS OF CONSCIOUSNESS [None]
  - MULTIPLE ALLERGIES [None]
  - NODULE [None]
  - PETIT MAL EPILEPSY [None]
  - PHARMACEUTICAL PRODUCT COMPLAINT [None]
  - POOR QUALITY DRUG ADMINISTERED [None]
  - PYREXIA [None]
  - ROAD TRAFFIC ACCIDENT [None]
  - THERAPEUTIC RESPONSE UNEXPECTED WITH DRUG SUBSTITUTION [None]
  - URTICARIA [None]
  - VERTIGO [None]
  - VOMITING [None]
